FAERS Safety Report 13427961 (Version 1)
Quarter: 2017Q2

REPORT INFORMATION
  Report Type: Spontaneous
  Country: PT (occurrence: PT)
  Receive Date: 20170411
  Receipt Date: 20170411
  Transmission Date: 20170830
  Serious: Yes (Hospitalization)
  Sender: FDA-Public Use
  Company Number: PT-SEBELA IRELAND LIMITED-2017SEB00241

PATIENT
  Age: 60 Year
  Sex: Female

DRUGS (3)
  1. AZATHIOPRINE. [Suspect]
     Active Substance: AZATHIOPRINE
     Indication: COLITIS ULCERATIVE
     Dosage: 2.2 MG/KG, 1X/DAY
     Route: 065
  2. INFLIXIMAB [Suspect]
     Active Substance: INFLIXIMAB
     Indication: COLITIS ULCERATIVE
     Dosage: 5 MG/KG, EVERY 6 WEEKS
     Route: 065
  3. MESSALAZINE [Concomitant]
     Dosage: 3 G, 1X/DAY
     Route: 065

REACTIONS (1)
  - Squamous cell carcinoma [Recovered/Resolved]
